FAERS Safety Report 8142566-4 (Version None)
Quarter: 2012Q1

REPORT INFORMATION
  Report Type: 
  Country: None (occurrence: None)
  Receive Date: 20120216
  Receipt Date: 20120206
  Transmission Date: 20120608
  Serious: Yes (Other)
  Sender: FDA-Public Use
  Company Number: GB-ABBOTT-11P-167-0886219-00

PATIENT
  Sex: Male

DRUGS (3)
  1. CIPRALEX [Concomitant]
     Indication: BIPOLAR DISORDER
  2. HUMIRA [Suspect]
     Indication: CROHN'S DISEASE
  3. DEPAKOTE [Concomitant]
     Indication: BIPOLAR DISORDER

REACTIONS (5)
  - JOINT STIFFNESS [None]
  - ARTHRALGIA [None]
  - RASH PUSTULAR [None]
  - PAIN OF SKIN [None]
  - DYSPNOEA [None]
